FAERS Safety Report 14853100 (Version 1)
Quarter: 2018Q2

REPORT INFORMATION
  Report Type: Spontaneous
  Country: CA (occurrence: CA)
  Receive Date: 20180507
  Receipt Date: 20180507
  Transmission Date: 20180711
  Serious: Yes (Other)
  Sender: FDA-Public Use
  Company Number: CA-GLAXOSMITHKLINE-CA2018GSK077305

PATIENT
  Age: 55 Year
  Sex: Female

DRUGS (4)
  1. HEPTOVIR [Suspect]
     Active Substance: LAMIVUDINE
     Indication: CHRONIC HEPATITIS B
     Dosage: 100 MG, UNK
  2. HEPSERA [Suspect]
     Active Substance: ADEFOVIR DIPIVOXIL
     Indication: CHRONIC HEPATITIS B
     Dosage: 10 MG, UNK
     Route: 048
  3. TELBIVUDINE [Suspect]
     Active Substance: TELBIVUDINE
     Indication: CHRONIC HEPATITIS B
     Dosage: 600 MG, UNK
  4. ENALAPRIL MALEATE. [Concomitant]
     Active Substance: ENALAPRIL MALEATE
     Indication: HYPERTENSION
     Dosage: UNK

REACTIONS (3)
  - Drug resistance [Recovered/Resolved]
  - Drug ineffective [Recovered/Resolved]
  - Hepatic function abnormal [Recovered/Resolved]
